FAERS Safety Report 6007290-2 (Version None)
Quarter: 2008Q4

REPORT INFORMATION
  Report Type: 
  Country: None (occurrence: None)
  Receive Date: 20081217
  Receipt Date: 20080225
  Transmission Date: 20090506
  Serious: No
  Sender: FDA-Public Use
  Company Number: US-ASTRAZENECA-2008UW03916

PATIENT
  Age: 63 Year
  Sex: Female
  Weight: 72.6 kg

DRUGS (4)
  1. CRESTOR [Suspect]
     Route: 048
     Dates: start: 20080101
  2. ATENOLOL [Concomitant]
  3. PROTONIX [Concomitant]
  4. PAXIL [Concomitant]
     Indication: TREMOR

REACTIONS (2)
  - FATIGUE [None]
  - UPPER RESPIRATORY TRACT INFECTION [None]
